FAERS Safety Report 9277003 (Version 2)
Quarter: 2013Q3

REPORT INFORMATION
  Report Type: Spontaneous
  Country: AR (occurrence: AR)
  Receive Date: 20130507
  Receipt Date: 20130717
  Transmission Date: 20140515
  Serious: Yes (Other)
  Sender: FDA-Public Use
  Company Number: CHNY2013AR001062

PATIENT
  Sex: Male

DRUGS (3)
  1. NICOTINELL TTS 30 [Suspect]
     Indication: SMOKING CESSATION THERAPY
     Dosage: 21 MG, QD
     Route: 062
     Dates: start: 201304
  2. NICOTINELL TTS 30 [Suspect]
     Dosage: 21 MG, QD
     Route: 062
     Dates: start: 2011, end: 2011
  3. NICOTINELL TTS 30 [Suspect]
     Dosage: 21 MG, QD
     Route: 062
     Dates: start: 2005, end: 2005

REACTIONS (8)
  - Pulmonary mass [Not Recovered/Not Resolved]
  - Lung neoplasm malignant [Not Recovered/Not Resolved]
  - Dizziness [Recovered/Resolved]
  - Application site pruritus [Recovered/Resolved]
  - Application site erythema [Recovered/Resolved]
  - Nicotine dependence [Not Recovered/Not Resolved]
  - Drug ineffective [Unknown]
  - Therapeutic response decreased [Not Recovered/Not Resolved]
